FAERS Safety Report 12601513 (Version 1)
Quarter: 2016Q3

REPORT INFORMATION
  Report Type: Spontaneous
  Country: US (occurrence: None)
  Receive Date: 20160727
  Receipt Date: 20160727
  Transmission Date: 20161109
  Serious: Yes (Hospitalization)
  Sender: FDA-Public Use
  Company Number: None

PATIENT
  Age: 24 Year
  Sex: Male
  Weight: 92.99 kg

DRUGS (2)
  1. GADAVIST [Suspect]
     Active Substance: GADOBUTROL
     Indication: NUCLEAR MAGNETIC RESONANCE IMAGING
     Route: 040
     Dates: start: 20160725, end: 20160725
  2. NS [Concomitant]
     Active Substance: SODIUM CHLORIDE

REACTIONS (6)
  - Paraesthesia [None]
  - Hyperhidrosis [None]
  - Erythema [None]
  - Unevaluable event [None]
  - Vomiting [None]
  - Swelling [None]

NARRATIVE: CASE EVENT DATE: 20160725
